FAERS Safety Report 5213937-0 (Version None)
Quarter: 2007Q1

REPORT INFORMATION
  Report Type: 
  Country: None (occurrence: None)
  Receive Date: 20070110
  Receipt Date: 20061227
  Transmission Date: 20070707
  Serious: Yes (Other)
  Sender: FDA-Public Use
  Company Number: GRP06000037

PATIENT
  Age: 65 Year
  Sex: Female
  Weight: 59 kg

DRUGS (4)
  1. ACTONEL [Suspect]
     Indication: OSTEOPOROSIS
     Dosage: 35 MG, 1/WEEK; ORAL
     Route: 048
     Dates: start: 20060101, end: 20060212
  2. DICLOFENAC SODIUM [Concomitant]
  3. PARACETAMOL [Concomitant]
  4. MARCUMAR [Concomitant]

REACTIONS (10)
  - ARTHROPATHY [None]
  - BLOOD ALKALINE PHOSPHATASE INCREASED [None]
  - GAIT DISTURBANCE [None]
  - GENERAL PHYSICAL CONDITION ABNORMAL [None]
  - HYPOAESTHESIA [None]
  - MUSCLE DISORDER [None]
  - MUSCULAR WEAKNESS [None]
  - OSTEOCALCIN INCREASED [None]
  - PAIN IN EXTREMITY [None]
  - SPINAL DEFORMITY [None]
